FAERS Safety Report 5578535-8 (Version None)
Quarter: 2007Q4

REPORT INFORMATION
  Report Type: 
  Country: None (occurrence: None)
  Receive Date: 20071231
  Receipt Date: 20071220
  Transmission Date: 20080405
  Serious: Yes (Disabling, Other)
  Sender: FDA-Public Use
  Company Number: CA-PFIZER INC-2007108077

PATIENT
  Sex: Male
  Weight: 77.272 kg

DRUGS (3)
  1. CHANTIX [Suspect]
     Indication: SMOKING CESSATION THERAPY
     Route: 048
     Dates: start: 20071210, end: 20071211
  2. ACETAMINOPHEN AND OXYCODONE HCL [Suspect]
     Indication: HERNIA PAIN
     Route: 048
  3. ATIVAN [Concomitant]

REACTIONS (3)
  - ANXIETY [None]
  - MANIA [None]
  - PANIC ATTACK [None]
